FAERS Safety Report 14381027 (Version 1)
Quarter: 2018Q1

REPORT INFORMATION
  Report Type: Report from Study
  Country: FR (occurrence: FR)
  Receive Date: 20180112
  Receipt Date: 20180112
  Transmission Date: 20180509
  Serious: Yes (Other)
  Sender: FDA-Public Use
  Company Number: FR-TEVA-2018-FR-844208

PATIENT
  Sex: Female

DRUGS (15)
  1. PEGASPARGASE [Suspect]
     Active Substance: PEGASPARGASE
     Indication: ACUTE LYMPHOCYTIC LEUKAEMIA
     Dosage: 3600 IU, 1X/DAY:QD
     Dates: start: 20170930, end: 20171027
  2. SOLU-MEDROL [Concomitant]
     Active Substance: METHYLPREDNISOLONE SODIUM SUCCINATE
     Indication: PRODUCT USED FOR UNKNOWN INDICATION
  3. CYTARABINE. [Suspect]
     Active Substance: CYTARABINE
     Dosage: 100 MG, 1X/DAY:QD
     Route: 048
     Dates: start: 20170917, end: 20171025
  4. ARACYTINE [Concomitant]
     Active Substance: CYTARABINE
     Indication: PRODUCT USED FOR UNKNOWN INDICATION
     Dosage: 106 UNK, UNK
     Dates: start: 20171024
  5. ARACYTINE [Concomitant]
     Active Substance: CYTARABINE
     Dosage: 106 UNK, UNK
     Dates: start: 20171025
  6. VINCRISTINE [Suspect]
     Active Substance: VINCRISTINE
     Indication: ACUTE LYMPHOCYTIC LEUKAEMIA
     Dosage: 2 MG, UNK
     Dates: start: 20170930
  7. CYCLOPHOSPHAMIDE. [Suspect]
     Active Substance: CYCLOPHOSPHAMIDE
     Indication: ACUTE LYMPHOCYTIC LEUKAEMIA
     Dosage: 1380 MG, 1X/DAY:QD
     Dates: start: 20170915, end: 20171013
  8. ARACYTINE [Concomitant]
     Active Substance: CYTARABINE
     Dosage: 106 MG, UNK
     Dates: start: 20171023
  9. VINCRISTINE [Suspect]
     Active Substance: VINCRISTINE
     Dosage: 2 UNK, UNK
     Dates: start: 20171027
  10. INNOHEP [Concomitant]
     Active Substance: TINZAPARIN SODIUM
     Indication: PRODUCT USED FOR UNKNOWN INDICATION
  11. HYDROCORTISONE. [Suspect]
     Active Substance: HYDROCORTISONE
     Indication: ACUTE LYMPHOCYTIC LEUKAEMIA
     Dosage: 15 MG, 1X/DAY:QD
     Route: 037
     Dates: start: 20170918, end: 20171016
  12. MERCAPTOPURINE. [Suspect]
     Active Substance: MERCAPTOPURINE
     Indication: ACUTE LYMPHOCYTIC LEUKAEMIA
     Dosage: 85 MG, 1X/DAY:QD
     Route: 048
     Dates: start: 20170915, end: 20171026
  13. METHOTREXATE. [Suspect]
     Active Substance: METHOTREXATE
     Indication: ACUTE LYMPHOCYTIC LEUKAEMIA
     Dosage: 15 MG, 1X/DAY:QD
     Route: 037
     Dates: start: 20170918, end: 20171016
  14. CYTARABINE. [Suspect]
     Active Substance: CYTARABINE
     Indication: ACUTE LYMPHOCYTIC LEUKAEMIA
     Dosage: 30 MG, UNK
     Route: 037
     Dates: start: 20170918, end: 20171016
  15. ARACYTINE [Concomitant]
     Active Substance: CYTARABINE
     Dosage: 106 UNK, UNK
     Dates: start: 20171027

REACTIONS (1)
  - Anaphylactic reaction [Recovered/Resolved]

NARRATIVE: CASE EVENT DATE: 20171027
